FAERS Safety Report 16797741 (Version 10)
Quarter: 2021Q4

REPORT INFORMATION
  Report Type: Spontaneous
  Country: CA (occurrence: CA)
  Receive Date: 20190912
  Receipt Date: 20211214
  Transmission Date: 20220303
  Serious: Yes (Other)
  Sender: FDA-Public Use
  Company Number: CA-TEVA-2019-CA-1104790

PATIENT
  Sex: Female

DRUGS (222)
  1. AZITHROMYCIN [Suspect]
     Active Substance: AZITHROMYCIN
     Indication: Product used for unknown indication
     Route: 065
  2. AZITHROMYCIN [Suspect]
     Active Substance: AZITHROMYCIN
     Route: 065
  3. AZITHROMYCIN [Suspect]
     Active Substance: AZITHROMYCIN
     Route: 065
  4. AZITHROMYCIN [Suspect]
     Active Substance: AZITHROMYCIN
     Route: 065
  5. ACETAMINOPHEN [Suspect]
     Active Substance: ACETAMINOPHEN
     Indication: Product used for unknown indication
     Route: 065
  6. ACETAMINOPHEN [Suspect]
     Active Substance: ACETAMINOPHEN
     Route: 065
  7. ACETAMINOPHEN [Suspect]
     Active Substance: ACETAMINOPHEN
     Route: 065
  8. ACETAMINOPHEN [Suspect]
     Active Substance: ACETAMINOPHEN
     Route: 065
  9. ACETAMINOPHEN [Suspect]
     Active Substance: ACETAMINOPHEN
     Route: 065
  10. ACETAMINOPHEN [Suspect]
     Active Substance: ACETAMINOPHEN
     Route: 065
  11. ALPRAZOLAM [Suspect]
     Active Substance: ALPRAZOLAM
     Indication: Product used for unknown indication
     Route: 065
  12. ALPRAZOLAM [Suspect]
     Active Substance: ALPRAZOLAM
     Route: 065
  13. ALPRAZOLAM [Suspect]
     Active Substance: ALPRAZOLAM
     Route: 065
  14. ALPRAZOLAM [Suspect]
     Active Substance: ALPRAZOLAM
     Route: 065
  15. AMOXICILLIN TRIHYDRATE [Suspect]
     Active Substance: AMOXICILLIN
     Indication: Product used for unknown indication
     Route: 065
  16. ATORVASTATIN [Suspect]
     Active Substance: ATORVASTATIN
     Indication: Product used for unknown indication
     Route: 065
  17. ATORVASTATIN [Suspect]
     Active Substance: ATORVASTATIN
     Route: 065
  18. BUDESONIDE [Suspect]
     Active Substance: BUDESONIDE
     Indication: Product used for unknown indication
     Route: 065
  19. AZITHROMYCIN DIHYDRATE [Suspect]
     Active Substance: AZITHROMYCIN DIHYDRATE
     Indication: Product used for unknown indication
     Route: 065
  20. BETAMETHASONE DIPROPIONATE [Suspect]
     Active Substance: BETAMETHASONE DIPROPIONATE
     Indication: Product used for unknown indication
     Route: 065
  21. BETAMETHASONE DIPROPIONATE [Suspect]
     Active Substance: BETAMETHASONE DIPROPIONATE
     Route: 065
  22. CLARITHROMYCIN [Suspect]
     Active Substance: CLARITHROMYCIN
     Indication: Product used for unknown indication
     Route: 065
  23. CLARITHROMYCIN [Suspect]
     Active Substance: CLARITHROMYCIN
     Route: 065
  24. CALCIUM CARBONATE\ERGOCALCIFEROL [Suspect]
     Active Substance: CALCIUM CARBONATE\ERGOCALCIFEROL
     Indication: Product used for unknown indication
     Route: 065
  25. CALCIUM CARBONATE\ERGOCALCIFEROL [Suspect]
     Active Substance: CALCIUM CARBONATE\ERGOCALCIFEROL
     Route: 065
  26. CALCIUM CARBONATE\ERGOCALCIFEROL [Suspect]
     Active Substance: CALCIUM CARBONATE\ERGOCALCIFEROL
     Route: 065
  27. CALCIUM CARBONATE\ERGOCALCIFEROL [Suspect]
     Active Substance: CALCIUM CARBONATE\ERGOCALCIFEROL
     Route: 065
  28. MESALAMINE [Suspect]
     Active Substance: MESALAMINE
     Indication: Product used for unknown indication
     Route: 065
  29. MESALAMINE [Suspect]
     Active Substance: MESALAMINE
     Route: 065
  30. DIPHENHYDRAMINE [Suspect]
     Active Substance: DIPHENHYDRAMINE
     Indication: Product used for unknown indication
     Route: 065
  31. NICOTINE [Suspect]
     Active Substance: NICOTINE
     Indication: Product used for unknown indication
     Route: 065
  32. NICOTINE [Suspect]
     Active Substance: NICOTINE
     Route: 065
  33. MORPHINE SULFATE [Suspect]
     Active Substance: MORPHINE SULFATE
     Indication: Product used for unknown indication
     Route: 065
  34. MORPHINE SULFATE [Suspect]
     Active Substance: MORPHINE SULFATE
     Route: 065
  35. MORPHINE SULFATE [Suspect]
     Active Substance: MORPHINE SULFATE
     Route: 065
  36. METRONIDAZOLE [Suspect]
     Active Substance: METRONIDAZOLE
     Indication: Product used for unknown indication
     Route: 065
  37. METRONIDAZOLE [Suspect]
     Active Substance: METRONIDAZOLE
     Route: 065
  38. HYDROCHLOROTHIAZIDE [Suspect]
     Active Substance: HYDROCHLOROTHIAZIDE
     Indication: Product used for unknown indication
     Route: 065
  39. HYDROCHLOROTHIAZIDE [Suspect]
     Active Substance: HYDROCHLOROTHIAZIDE
     Route: 065
  40. VALSARTAN [Suspect]
     Active Substance: VALSARTAN
     Indication: Product used for unknown indication
     Route: 065
  41. FLUTICASONE PROPIONATE [Suspect]
     Active Substance: FLUTICASONE PROPIONATE
     Indication: Product used for unknown indication
     Route: 065
  42. NICOTINE POLACRILEX [Suspect]
     Active Substance: NICOTINE
     Indication: Product used for unknown indication
     Route: 065
  43. ASPIRIN [Suspect]
     Active Substance: ASPIRIN
     Indication: Product used for unknown indication
     Route: 065
  44. PANTOPRAZOLE [Suspect]
     Active Substance: PANTOPRAZOLE
     Indication: Product used for unknown indication
     Route: 065
  45. CALCIUM CARBONATE [Suspect]
     Active Substance: CALCIUM CARBONATE
     Indication: Product used for unknown indication
     Route: 065
  46. CALCIUM CARBONATE [Suspect]
     Active Substance: CALCIUM CARBONATE
     Route: 065
  47. CALCIUM CARBONATE [Suspect]
     Active Substance: CALCIUM CARBONATE
     Route: 065
  48. CALCIUM CARBONATE [Suspect]
     Active Substance: CALCIUM CARBONATE
     Route: 065
  49. CALCIUM CARBONATE [Suspect]
     Active Substance: CALCIUM CARBONATE
     Route: 065
  50. CALCIUM CARBONATE [Suspect]
     Active Substance: CALCIUM CARBONATE
     Route: 065
  51. CALCIUM CARBONATE [Suspect]
     Active Substance: CALCIUM CARBONATE
     Route: 065
  52. BETAMETHASONE VALERATE [Suspect]
     Active Substance: BETAMETHASONE VALERATE
     Indication: Product used for unknown indication
     Route: 065
  53. BETAMETHASONE VALERATE [Suspect]
     Active Substance: BETAMETHASONE VALERATE
     Route: 065
  54. BETAMETHASONE VALERATE [Suspect]
     Active Substance: BETAMETHASONE VALERATE
     Route: 065
  55. BETAMETHASONE VALERATE [Suspect]
     Active Substance: BETAMETHASONE VALERATE
     Route: 065
  56. BETAMETHASONE VALERATE [Suspect]
     Active Substance: BETAMETHASONE VALERATE
     Route: 065
  57. BETAMETHASONE VALERATE [Suspect]
     Active Substance: BETAMETHASONE VALERATE
     Route: 065
  58. BETAMETHASONE VALERATE [Suspect]
     Active Substance: BETAMETHASONE VALERATE
     Route: 065
  59. ATORVASTATIN CALCIUM [Suspect]
     Active Substance: ATORVASTATIN CALCIUM
     Indication: Product used for unknown indication
     Route: 065
  60. ATORVASTATIN CALCIUM [Suspect]
     Active Substance: ATORVASTATIN CALCIUM
     Route: 065
  61. MAGNESIUM SULFATE [Suspect]
     Active Substance: MAGNESIUM SULFATE
     Indication: Product used for unknown indication
     Route: 065
  62. PREDNISONE [Suspect]
     Active Substance: PREDNISONE
     Indication: Product used for unknown indication
     Route: 065
  63. PREDNISONE [Suspect]
     Active Substance: PREDNISONE
     Route: 065
  64. PREDNISONE [Suspect]
     Active Substance: PREDNISONE
     Route: 065
  65. PREDNISONE [Suspect]
     Active Substance: PREDNISONE
     Route: 065
  66. PREDNISONE [Suspect]
     Active Substance: PREDNISONE
     Route: 065
  67. PREDNISONE [Suspect]
     Active Substance: PREDNISONE
     Route: 065
  68. PREGABALIN [Suspect]
     Active Substance: PREGABALIN
     Indication: Product used for unknown indication
     Route: 065
  69. PREGABALIN [Suspect]
     Active Substance: PREGABALIN
     Route: 065
  70. PREGABALIN [Suspect]
     Active Substance: PREGABALIN
     Route: 065
  71. PREGABALIN [Suspect]
     Active Substance: PREGABALIN
     Route: 065
  72. PREGABALIN [Suspect]
     Active Substance: PREGABALIN
     Route: 065
  73. PREGABALIN [Suspect]
     Active Substance: PREGABALIN
     Route: 065
  74. PREGABALIN [Suspect]
     Active Substance: PREGABALIN
     Route: 065
  75. PREGABALIN [Suspect]
     Active Substance: PREGABALIN
     Route: 065
  76. LOPERAMIDE HYDROCHLORIDE [Suspect]
     Active Substance: LOPERAMIDE HYDROCHLORIDE
     Indication: Product used for unknown indication
     Dosage: 4 DOSAGE FORMS DAILY;
     Route: 048
  77. LOPERAMIDE HYDROCHLORIDE [Suspect]
     Active Substance: LOPERAMIDE HYDROCHLORIDE
     Dosage: 4 DOSAGE FORMS DAILY;
     Route: 048
  78. LOPERAMIDE HYDROCHLORIDE [Suspect]
     Active Substance: LOPERAMIDE HYDROCHLORIDE
     Route: 048
  79. ZINC OXIDE [Suspect]
     Active Substance: ZINC OXIDE
     Indication: Product used for unknown indication
     Route: 065
  80. HYDROMORPHONE HYDROCHLORIDE [Suspect]
     Active Substance: HYDROMORPHONE HYDROCHLORIDE
     Indication: Product used for unknown indication
     Route: 065
  81. SULFAMETHOXAZOLE\TRIMETHOPRIM [Suspect]
     Active Substance: SULFAMETHOXAZOLE\TRIMETHOPRIM
     Indication: Product used for unknown indication
     Route: 065
  82. SULFAMETHOXAZOLE\TRIMETHOPRIM [Suspect]
     Active Substance: SULFAMETHOXAZOLE\TRIMETHOPRIM
     Route: 065
  83. SULFAMETHOXAZOLE\TRIMETHOPRIM [Suspect]
     Active Substance: SULFAMETHOXAZOLE\TRIMETHOPRIM
     Route: 065
  84. SULFAMETHOXAZOLE\TRIMETHOPRIM [Suspect]
     Active Substance: SULFAMETHOXAZOLE\TRIMETHOPRIM
     Route: 065
  85. SULFAMETHOXAZOLE\TRIMETHOPRIM [Suspect]
     Active Substance: SULFAMETHOXAZOLE\TRIMETHOPRIM
     Route: 065
  86. SULFAMETHOXAZOLE\TRIMETHOPRIM [Suspect]
     Active Substance: SULFAMETHOXAZOLE\TRIMETHOPRIM
     Route: 065
  87. SULFAMETHOXAZOLE\TRIMETHOPRIM [Suspect]
     Active Substance: SULFAMETHOXAZOLE\TRIMETHOPRIM
     Route: 065
  88. SULFAMETHOXAZOLE\TRIMETHOPRIM [Suspect]
     Active Substance: SULFAMETHOXAZOLE\TRIMETHOPRIM
     Route: 065
  89. FLUTICASONE FUROATE [Suspect]
     Active Substance: FLUTICASONE FUROATE
     Indication: Product used for unknown indication
     Route: 065
  90. HYDROCHLOROTHIAZIDE [Suspect]
     Active Substance: HYDROCHLOROTHIAZIDE
     Indication: Product used for unknown indication
     Route: 065
  91. HYDROCHLOROTHIAZIDE [Suspect]
     Active Substance: HYDROCHLOROTHIAZIDE
     Route: 005
  92. HYDROCHLOROTHIAZIDE [Suspect]
     Active Substance: HYDROCHLOROTHIAZIDE
     Route: 005
  93. FLUTICASONE FUROATE [Suspect]
     Active Substance: FLUTICASONE FUROATE
     Indication: Product used for unknown indication
     Route: 065
  94. FLUTICASONE FUROATE [Suspect]
     Active Substance: FLUTICASONE FUROATE
     Route: 065
  95. BACTROBAN [Suspect]
     Active Substance: MUPIROCIN\MUPIROCIN CALCIUM
     Indication: Product used for unknown indication
     Route: 065
  96. BETADERM [Suspect]
     Active Substance: BETAMETHASONE VALERATE
     Indication: Product used for unknown indication
     Route: 065
  97. BIAXIN [Suspect]
     Active Substance: CLARITHROMYCIN
     Indication: Product used for unknown indication
     Route: 065
  98. BIAXIN [Suspect]
     Active Substance: CLARITHROMYCIN
     Route: 065
  99. BIAXIN [Suspect]
     Active Substance: CLARITHROMYCIN
     Route: 065
  100. CALCIUM\CHOLECALCIFEROL\MAGNESIUM [Suspect]
     Active Substance: CALCIUM\CHOLECALCIFEROL\MAGNESIUM
     Indication: Product used for unknown indication
     Route: 065
  101. CALCIUM CARBONATE\CHOLECALCIFEROL [Suspect]
     Active Substance: CALCIUM CARBONATE\CHOLECALCIFEROL
     Indication: Product used for unknown indication
     Route: 065
  102. CETIRIZINE [Suspect]
     Active Substance: CETIRIZINE HYDROCHLORIDE
     Indication: Allergy prophylaxis
     Route: 065
  103. CETIRIZINE [Suspect]
     Active Substance: CETIRIZINE HYDROCHLORIDE
     Route: 065
  104. CLOTRIMAZOLE [Suspect]
     Active Substance: CLOTRIMAZOLE
     Indication: Product used for unknown indication
     Route: 065
  105. MINERALS\VITAMINS [Suspect]
     Active Substance: MINERALS\VITAMINS
     Indication: Product used for unknown indication
     Route: 065
  106. DESONIDE [Suspect]
     Active Substance: DESONIDE
     Indication: Product used for unknown indication
     Route: 065
  107. DILAUDID [Suspect]
     Active Substance: HYDROMORPHONE HYDROCHLORIDE
     Indication: Product used for unknown indication
     Route: 065
  108. ENTOCORT [Suspect]
     Active Substance: BUDESONIDE
     Indication: Product used for unknown indication
     Route: 048
  109. ENTOCORT [Suspect]
     Active Substance: BUDESONIDE
     Route: 065
  110. ENTOCORT [Suspect]
     Active Substance: BUDESONIDE
     Route: 065
  111. ENTOCORT [Suspect]
     Active Substance: BUDESONIDE
     Route: 065
  112. ERTAPENEM [Suspect]
     Active Substance: ERTAPENEM
     Indication: Product used for unknown indication
     Route: 065
  113. ERTAPENEM [Suspect]
     Active Substance: ERTAPENEM
     Route: 065
  114. FLOVENT [Suspect]
     Active Substance: FLUTICASONE PROPIONATE
     Indication: Product used for unknown indication
     Route: 065
  115. FLOVENT [Suspect]
     Active Substance: FLUTICASONE PROPIONATE
     Route: 065
  116. FLOVENT [Suspect]
     Active Substance: FLUTICASONE PROPIONATE
     Route: 048
  117. GLYCERIN [Suspect]
     Active Substance: GLYCERIN
     Indication: Product used for unknown indication
     Route: 065
  118. GLYCERIN [Suspect]
     Active Substance: GLYCERIN
     Route: 048
  119. GLYCERIN [Suspect]
     Active Substance: GLYCERIN
     Route: 065
  120. GRAMICIDIN\NEOMYCIN SULFATE\POLYMYXIN B SULFATE [Suspect]
     Active Substance: GRAMICIDIN\NEOMYCIN SULFATE\POLYMYXIN B SULFATE
     Indication: Product used for unknown indication
     Route: 065
  121. HABITROL [Suspect]
     Active Substance: NICOTINE
     Indication: Product used for unknown indication
     Route: 065
  122. HUMIRA [Suspect]
     Active Substance: ADALIMUMAB
     Indication: Crohn^s disease
     Route: 058
  123. HUMIRA [Suspect]
     Active Substance: ADALIMUMAB
     Route: 058
  124. HUMIRA [Suspect]
     Active Substance: ADALIMUMAB
     Route: 058
  125. KENALOG [Suspect]
     Active Substance: TRIAMCINOLONE ACETONIDE
     Indication: Product used for unknown indication
     Route: 065
  126. LOMOTIL [Suspect]
     Active Substance: ATROPINE SULFATE\DIPHENOXYLATE HYDROCHLORIDE
     Indication: Product used for unknown indication
     Route: 048
  127. POLYETHYLENE GLYCOL 3350\POTASSIUM CHLORIDE\SODIUM BICARBONATE\SODIUM [Suspect]
     Active Substance: POLYETHYLENE GLYCOL 3350\POTASSIUM CHLORIDE\SODIUM BICARBONATE\SODIUM CHLORIDE\SODIUM SULFATE
     Indication: Product used for unknown indication
     Route: 065
  128. MORPHINE SULFATE [Suspect]
     Active Substance: MORPHINE SULFATE
     Indication: Product used for unknown indication
     Route: 065
  129. MUPIROCIN [Suspect]
     Active Substance: MUPIROCIN
     Indication: Product used for unknown indication
     Route: 061
  130. MUPIROCIN [Suspect]
     Active Substance: MUPIROCIN
     Route: 065
  131. MUPIROCIN [Suspect]
     Active Substance: MUPIROCIN
     Route: 061
  132. MUPIROCIN [Suspect]
     Active Substance: MUPIROCIN
     Route: 065
  133. NICODERM CQ [Suspect]
     Active Substance: NICOTINE
     Indication: Product used for unknown indication
     Route: 065
  134. NICODERM CQ [Suspect]
     Active Substance: NICOTINE
     Route: 065
  135. NICODERM CQ [Suspect]
     Active Substance: NICOTINE
     Route: 065
  136. PENTASA [Suspect]
     Active Substance: MESALAMINE
     Indication: Product used for unknown indication
     Route: 065
  137. PULMICORT TURBUHALER [Suspect]
     Active Substance: BUDESONIDE
     Indication: Product used for unknown indication
     Route: 065
  138. PULMICORT TURBUHALER [Suspect]
     Active Substance: BUDESONIDE
     Route: 055
  139. REFRESH TEARS [Suspect]
     Active Substance: CARBOXYMETHYLCELLULOSE SODIUM
     Indication: Product used for unknown indication
     Route: 047
  140. REFRESH TEARS [Suspect]
     Active Substance: CARBOXYMETHYLCELLULOSE SODIUM
     Route: 047
  141. SODIUM CHLORIDE [Suspect]
     Active Substance: SODIUM CHLORIDE
     Indication: Product used for unknown indication
     Route: 065
  142. SODIUM BICARBONATE\SODIUM CHLORIDE [Suspect]
     Active Substance: SODIUM BICARBONATE\SODIUM CHLORIDE
     Indication: Product used for unknown indication
     Route: 050
  143. MORPHINE SULFATE [Suspect]
     Active Substance: MORPHINE SULFATE
     Indication: Product used for unknown indication
     Route: 065
  144. TRIAMCINOLONE ACETONIDE [Suspect]
     Active Substance: TRIAMCINOLONE ACETONIDE
     Indication: Product used for unknown indication
     Route: 014
  145. TRIAMCINOLONE ACETONIDE [Suspect]
     Active Substance: TRIAMCINOLONE ACETONIDE
     Route: 014
  146. TRIAMCINOLONE ACETONIDE [Suspect]
     Active Substance: TRIAMCINOLONE ACETONIDE
     Route: 065
  147. TRIAMCINOLONE ACETONIDE [Suspect]
     Active Substance: TRIAMCINOLONE ACETONIDE
     Route: 065
  148. VITAMIN D3 [Suspect]
     Active Substance: CHOLECALCIFEROL
     Indication: Product used for unknown indication
     Route: 065
  149. VITAMIN D3 [Suspect]
     Active Substance: CHOLECALCIFEROL
     Route: 065
  150. VITAMIN D3 [Suspect]
     Active Substance: CHOLECALCIFEROL
     Route: 065
  151. VITAMINS [Suspect]
     Active Substance: VITAMINS
     Indication: Product used for unknown indication
     Route: 065
  152. HYDROCHLOROTHIAZIDE [Suspect]
     Active Substance: HYDROCHLOROTHIAZIDE
     Indication: Product used for unknown indication
     Route: 065
  153. HYDROCHLOROTHIAZIDE [Suspect]
     Active Substance: HYDROCHLOROTHIAZIDE
     Route: 065
  154. ATROPINE SULFATE\DIFENOXIN HYDROCHLORIDE [Suspect]
     Active Substance: ATROPINE SULFATE\DIFENOXIN HYDROCHLORIDE
     Indication: Product used for unknown indication
     Route: 065
  155. FLUTICASONE FUROATE [Suspect]
     Active Substance: FLUTICASONE FUROATE
     Indication: Product used for unknown indication
     Route: 065
  156. FLUTICASONE FUROATE [Suspect]
     Active Substance: FLUTICASONE FUROATE
     Route: 065
  157. BACTRIM [Suspect]
     Active Substance: SULFAMETHOXAZOLE\TRIMETHOPRIM
     Indication: Product used for unknown indication
     Route: 065
  158. BISACODYL [Suspect]
     Active Substance: BISACODYL
     Indication: Product used for unknown indication
     Route: 065
  159. KENALOG [Suspect]
     Active Substance: TRIAMCINOLONE ACETONIDE
     Indication: Product used for unknown indication
     Route: 014
  160. METRONIDAZOLE [Suspect]
     Active Substance: METRONIDAZOLE
     Indication: Product used for unknown indication
     Route: 065
  161. NADOLOL [Suspect]
     Active Substance: NADOLOL
     Indication: Product used for unknown indication
     Route: 065
  162. NADOLOL [Suspect]
     Active Substance: NADOLOL
     Route: 065
  163. CETIRIZINE HYDROCHLORIDE [Suspect]
     Active Substance: CETIRIZINE HYDROCHLORIDE
     Indication: Product used for unknown indication
     Route: 065
  164. CETIRIZINE HYDROCHLORIDE [Suspect]
     Active Substance: CETIRIZINE HYDROCHLORIDE
     Indication: Allergy prophylaxis
     Route: 065
  165. CETIRIZINE HYDROCHLORIDE [Suspect]
     Active Substance: CETIRIZINE HYDROCHLORIDE
     Route: 065
  166. ERGOCALCIFEROL [Suspect]
     Active Substance: ERGOCALCIFEROL
     Indication: Product used for unknown indication
     Route: 065
  167. ERTAPENEM SODIUM [Suspect]
     Active Substance: ERTAPENEM SODIUM
     Indication: Product used for unknown indication
     Route: 065
  168. AMOXICILLIN [Suspect]
     Active Substance: AMOXICILLIN
     Indication: Product used for unknown indication
     Route: 065
  169. ADALIMUMAB [Suspect]
     Active Substance: ADALIMUMAB
     Indication: Crohn^s disease
     Route: 058
  170. ADALIMUMAB [Suspect]
     Active Substance: ADALIMUMAB
     Route: 058
  171. SODIUM CHLORIDE [Suspect]
     Active Substance: SODIUM CHLORIDE
     Indication: Product used for unknown indication
     Route: 045
  172. SODIUM CHLORIDE [Suspect]
     Active Substance: SODIUM CHLORIDE
     Route: 065
  173. SODIUM CHLORIDE [Suspect]
     Active Substance: SODIUM CHLORIDE
     Route: 050
  174. CARBOXYMETHYLCELLULOSE SODIUM [Suspect]
     Active Substance: CARBOXYMETHYLCELLULOSE SODIUM
     Indication: Product used for unknown indication
     Route: 047
  175. BISACODYL [Suspect]
     Active Substance: BISACODYL
     Indication: Product used for unknown indication
     Route: 065
  176. NADOLOL [Suspect]
     Active Substance: NADOLOL
     Indication: Product used for unknown indication
     Route: 065
  177. ACETAMINOPHEN\PSEUDOEPHEDRINE [Suspect]
     Active Substance: ACETAMINOPHEN\PSEUDOEPHEDRINE
     Indication: Product used for unknown indication
     Route: 065
  178. CUPRIC OXIDE [Suspect]
     Active Substance: CUPRIC OXIDE
     Indication: Product used for unknown indication
     Route: 065
  179. .ALPHA.-TOCOPHEROL ACETATE, D- [Suspect]
     Active Substance: .ALPHA.-TOCOPHEROL ACETATE, D-
     Indication: Product used for unknown indication
     Route: 065
  180. VITAMIN E [Suspect]
     Active Substance: .ALPHA.-TOCOPHEROL
     Indication: Product used for unknown indication
     Route: 065
  181. ZEAXANTHIN [Suspect]
     Active Substance: ZEAXANTHIN
     Indication: Product used for unknown indication
     Route: 065
  182. XANTOFYL PALMITATE [Suspect]
     Active Substance: XANTOFYL PALMITATE
     Indication: Product used for unknown indication
     Route: 065
  183. ATROPINE\DIPHENOXYLATE HYDROCHLORIDE [Suspect]
     Active Substance: ATROPINE\DIPHENOXYLATE HYDROCHLORIDE
     Indication: Product used for unknown indication
     Route: 048
  184. ATROPINE\DIPHENOXYLATE HYDROCHLORIDE [Suspect]
     Active Substance: ATROPINE\DIPHENOXYLATE HYDROCHLORIDE
     Route: 065
  185. GRAMICIDIN\POLYMYXIN B [Suspect]
     Active Substance: GRAMICIDIN\POLYMYXIN B
     Route: 065
  186. VITAMINS NOS [Suspect]
     Active Substance: VITAMINS
     Indication: Product used for unknown indication
     Route: 065
  187. MESALAMINE [Suspect]
     Active Substance: MESALAMINE
     Indication: Product used for unknown indication
     Route: 065
  188. GRAMICIDIN [Suspect]
     Active Substance: GRAMICIDIN
     Indication: Product used for unknown indication
     Route: 065
  189. GRAMICIDIN [Suspect]
     Active Substance: GRAMICIDIN
     Route: 065
  190. AZITHROMYCIN ANHYDROUS [Suspect]
     Active Substance: AZITHROMYCIN ANHYDROUS
     Indication: Product used for unknown indication
     Route: 065
  191. GLYCERIN [Suspect]
     Active Substance: GLYCERIN
     Indication: Product used for unknown indication
     Route: 065
  192. NICOTINE [Suspect]
     Active Substance: NICOTINE
     Indication: Product used for unknown indication
     Route: 065
  193. NICOTINE [Suspect]
     Active Substance: NICOTINE
     Route: 065
  194. SODIUM CHLORIDE [Suspect]
     Active Substance: SODIUM CHLORIDE
     Indication: Product used for unknown indication
     Route: 065
  195. PANTOPRAZOLE SODIUM ANHYDROUS [Suspect]
     Active Substance: PANTOPRAZOLE SODIUM ANHYDROUS
     Indication: Product used for unknown indication
     Route: 065
  196. CALCIUM CARBONATE\CHOLECALCIFEROL [Suspect]
     Active Substance: CALCIUM CARBONATE\CHOLECALCIFEROL
     Indication: Product used for unknown indication
     Route: 065
  197. BUDESONIDE [Suspect]
     Active Substance: BUDESONIDE
     Indication: Product used for unknown indication
     Route: 048
  198. BUDESONIDE [Suspect]
     Active Substance: BUDESONIDE
     Route: 003
  199. GLYCERIN [Suspect]
     Active Substance: GLYCERIN
     Indication: Product used for unknown indication
     Route: 048
  200. HYDROCHLOROTHIAZIDE [Suspect]
     Active Substance: HYDROCHLOROTHIAZIDE
     Indication: Product used for unknown indication
     Route: 005
  201. POLYETHYLENE GLYCOLS [Suspect]
     Active Substance: POLYETHYLENE GLYCOLS
     Indication: Product used for unknown indication
     Route: 065
  202. NEOMYCIN SULFATE [Suspect]
     Active Substance: NEOMYCIN SULFATE
     Indication: Product used for unknown indication
     Route: 065
  203. POTASSIUM CHLORIDE [Suspect]
     Active Substance: POTASSIUM CHLORIDE
     Indication: Product used for unknown indication
     Route: 065
  204. NICOTINE POLACRILEX [Suspect]
     Active Substance: NICOTINE
     Indication: Product used for unknown indication
     Route: 065
  205. SODIUM BICARBONATE [Suspect]
     Active Substance: SODIUM BICARBONATE
     Indication: Product used for unknown indication
     Route: 065
  206. POLYMYXIN B SULFATE [Suspect]
     Active Substance: POLYMYXIN B SULFATE
     Indication: Product used for unknown indication
     Route: 065
  207. ASPIRIN\CITRIC ACID\SODIUM BICARBONATE [Suspect]
     Active Substance: ASPIRIN\CITRIC ACID MONOHYDRATE\SODIUM BICARBONATE
     Indication: Product used for unknown indication
     Route: 065
  208. ATROPINE SULFATE\DIFENOXIN HYDROCHLORIDE [Suspect]
     Active Substance: ATROPINE SULFATE\DIFENOXIN HYDROCHLORIDE
     Indication: Product used for unknown indication
     Route: 048
  209. CALCIUM CARBONATE\CHOLECALCIFEROL [Suspect]
     Active Substance: CALCIUM CARBONATE\CHOLECALCIFEROL
     Indication: Product used for unknown indication
     Route: 065
  210. DIPHENHYDRAMINE HYDROCHLORIDE [Suspect]
     Active Substance: DIPHENHYDRAMINE HYDROCHLORIDE
     Indication: Product used for unknown indication
     Route: 065
  211. DIPHENHYDRAMINE HYDROCHLORIDE [Suspect]
     Active Substance: DIPHENHYDRAMINE HYDROCHLORIDE
     Route: 065
  212. SODIUM CHLORIDE [Suspect]
     Active Substance: SODIUM CHLORIDE
     Indication: Product used for unknown indication
     Route: 065
  213. VALSARTAN [Suspect]
     Active Substance: VALSARTAN
     Indication: Product used for unknown indication
     Route: 065
  214. VALSARTAN [Suspect]
     Active Substance: VALSARTAN
     Route: 016
  215. VITAMIN E [Suspect]
     Active Substance: .ALPHA.-TOCOPHEROL
     Indication: Product used for unknown indication
     Route: 065
  216. MUPIROCIN CALCIUM [Suspect]
     Active Substance: MUPIROCIN CALCIUM
     Indication: Product used for unknown indication
     Route: 065
  217. MESALAMINE [Suspect]
     Active Substance: MESALAMINE
     Indication: Product used for unknown indication
     Route: 065
  218. AMBROXOL\CETIRIZINE HYDROCHLORIDE [Suspect]
     Active Substance: AMBROXOL\CETIRIZINE HYDROCHLORIDE
     Indication: Product used for unknown indication
     Route: 065
  219. GLYCERIN [Suspect]
     Active Substance: GLYCERIN
     Indication: Product used for unknown indication
     Route: 048
  220. IMODIUM [Suspect]
     Active Substance: LOPERAMIDE HYDROCHLORIDE
     Indication: Product used for unknown indication
     Route: 065
  221. .ALPHA.-TOCOPHEROL, D- [Suspect]
     Active Substance: .ALPHA.-TOCOPHEROL, D-
     Indication: Product used for unknown indication
     Route: 065
  222. VALSARTAN [Concomitant]
     Active Substance: VALSARTAN
     Indication: Product used for unknown indication
     Route: 065

REACTIONS (2)
  - Macular degeneration [Unknown]
  - Drug ineffective [Unknown]
